FAERS Safety Report 10028666 (Version 1)
Quarter: 2014Q1

REPORT INFORMATION
  Report Type: Spontaneous
  Country: JP (occurrence: JP)
  Receive Date: 20140321
  Receipt Date: 20140321
  Transmission Date: 20141002
  Serious: Yes (Other)
  Sender: FDA-Public Use
  Company Number: JP-GLAXOSMITHKLINE-B0977563A

PATIENT
  Sex: Male

DRUGS (1)
  1. AVOLVE [Suspect]
     Indication: BENIGN PROSTATIC HYPERPLASIA
     Route: 048

REACTIONS (4)
  - Diabetes insipidus [Unknown]
  - Urine output increased [Unknown]
  - Blood pressure decreased [Unknown]
  - Weight decreased [Unknown]
